FAERS Safety Report 5724028-4 (Version None)
Quarter: 2008Q2

REPORT INFORMATION
  Report Type: 
  Country: None (occurrence: None)
  Receive Date: 20080430
  Receipt Date: 20080417
  Transmission Date: 20081010
  Serious: Yes (Other)
  Sender: FDA-Public Use
  Company Number: DE-GENENTECH-259873

PATIENT
  Sex: Male

DRUGS (1)
  1. AVASTIN [Suspect]
     Indication: METASTASES TO LIVER
     Dates: start: 20061001

REACTIONS (3)
  - CONFUSIONAL STATE [None]
  - INCONTINENCE [None]
  - MEMORY IMPAIRMENT [None]
